FAERS Safety Report 5911486-5 (Version None)
Quarter: 2008Q4

REPORT INFORMATION
  Report Type: 
  Country: None (occurrence: None)
  Receive Date: 20081002
  Receipt Date: 20080919
  Transmission Date: 20090506
  Serious: Yes (Hospitalization)
  Sender: FDA-Public Use
  Company Number: 2008US002519

PATIENT
  Age: 28 Year
  Sex: Male

DRUGS (2)
  1. AMBISOME [Suspect]
     Indication: FUNGAL SKIN INFECTION
  2. MYCAMINE [Suspect]
     Indication: CANDIDIASIS

REACTIONS (7)
  - HAEMODIALYSIS [None]
  - HISTOPLASMOSIS DISSEMINATED [None]
  - HYPOTENSION [None]
  - RENAL FAILURE ACUTE [None]
  - RESPIRATORY DISTRESS [None]
  - TACHYCARDIA [None]
  - TRICHOSPORON INFECTION [None]
